FAERS Safety Report 5611484-5 (Version None)
Quarter: 2008Q1

REPORT INFORMATION
  Report Type: 
  Country: None (occurrence: None)
  Receive Date: 20080201
  Receipt Date: 20071128
  Transmission Date: 20080703
  Serious: No
  Sender: FDA-Public Use
  Company Number: A0696299A

PATIENT
  Age: 61 Year
  Sex: Female

DRUGS (4)
  1. LOTRONEX [Suspect]
     Indication: IRRITABLE BOWEL SYNDROME
     Route: 048
     Dates: start: 20071120
  2. ESTRACE [Concomitant]
  3. ONE A DAY VITAMIN [Concomitant]
  4. CALCIUM + VITAMIN D [Concomitant]

REACTIONS (1)
  - ABDOMINAL PAIN UPPER [None]
